FAERS Safety Report 5021196-7 (Version None)
Quarter: 2006Q2

REPORT INFORMATION
  Report Type: 
  Country: None (occurrence: None)
  Receive Date: 20060425
  Receipt Date: 20050603
  Transmission Date: 20061013
  Serious: Yes (Life-Threatening)
  Sender: FDA-Public Use
  Company Number: WAES 0506USA00811

PATIENT
  Age: 6 Year
  Sex: Male
  Weight: 24.0406 kg

DRUGS (5)
  1. SINGULAIR [Suspect]
     Indication: ASTHMA
     Dosage: 5 MG DAILY PO
     Route: 048
     Dates: start: 20050527, end: 20050601
  2. AUGMENTIN ES-600 [Concomitant]
  3. FLONASE [Concomitant]
  4. QVAR 40 [Concomitant]
  5. ALBUTEROL SPIROS [Concomitant]

REACTIONS (2)
  - ANGIONEUROTIC OEDEMA [None]
  - URTICARIA [None]
